FAERS Safety Report 8789755 (Version 1)
Quarter: 2012Q4

REPORT INFORMATION
  Report Type: Spontaneous
  Country: GB (occurrence: None)
  Receive Date: 20120906
  Receipt Date: 20120906
  Transmission Date: 20130627
  Serious: Yes (Other)
  Sender: FDA-Public Use
  Company Number: GER/UKI/12/0025630

PATIENT
  Age: 71 Year
  Sex: Female
  Weight: 57.15 kg

DRUGS (5)
  1. AMLODIPINE (AMLODIPINE) [Suspect]
  2. BENDROFLUMETHIAZIDE (BENDROFLUMETHIAZIDE) [Concomitant]
  3. HYDROCORTISONE (HYDROCORTISONE) [Concomitant]
  4. LISINOPRIL (LISINOPRIL) [Concomitant]
  5. PROCHLORPERAZINE (PROCHLORPERAZINE) [Concomitant]

REACTIONS (1)
  - Breast pain [None]
